FAERS Safety Report 10363414 (Version 1)
Quarter: 2014Q1

REPORT INFORMATION
  Report Type: Spontaneous
  Country: US (occurrence: None)
  Receive Date: 20140306
  Receipt Date: 20140306
  Transmission Date: 20141002
  Serious: Yes (Other)
  Sender: FDA-Public Use
  Company Number: 163-21880-13020305

PATIENT
  Age: 68 Year
  Sex: Female
  Weight: 86.6 kg

DRUGS (12)
  1. REVLIMID [Suspect]
     Indication: CHRONIC LYMPHOCYTIC LEUKAEMIA
     Dosage: 2 WEEKS ON/ 1 WEEK OFF, PO
     Route: 048
     Dates: start: 201106, end: 201204
  2. LISINOPRIL [Concomitant]
  3. METFORMIN [Concomitant]
  4. LOVASTATIN [Concomitant]
  5. XANAX [Concomitant]
  6. ALBUTEROL NEBULIZER(SALBUTAMOL) (UNKNOWN)L [Concomitant]
  7. SPIRIVA [Concomitant]
  8. VITAMIN D [Concomitant]
  9. MULTIVITAMINS [Concomitant]
  10. TESSALON PERLES [Concomitant]
  11. IG(IMMUNOGLOBULIN [Concomitant]
  12. RITUXAN [Concomitant]

REACTIONS (2)
  - Pancytopenia [None]
  - Lymphadenopathy [None]
